FAERS Safety Report 9416573 (Version 1)
Quarter: 2013Q3

REPORT INFORMATION
  Report Type: Spontaneous
  Country: US (occurrence: None)
  Receive Date: 20130719
  Receipt Date: 20130719
  Transmission Date: 20140515
  Serious: Yes (Other)
  Sender: FDA-Public Use
  Company Number: 1307-901

PATIENT
  Age: 97 Year
  Sex: Male

DRUGS (1)
  1. EYLEA [Suspect]
     Dosage: 2 MG, EVERY OTHER MONTH, INTRAVITREAL
     Dates: start: 20121204

REACTIONS (4)
  - Blindness transient [None]
  - Eye infection staphylococcal [None]
  - Eye infection [None]
  - Eye inflammation [None]
